FAERS Safety Report 9160103 (Version 1)
Quarter: 2013Q1

REPORT INFORMATION
  Report Type: Spontaneous
  Country: US (occurrence: None)
  Receive Date: 20130220
  Receipt Date: 20130220
  Transmission Date: 20140127
  Serious: Yes (Other)
  Sender: FDA-Public Use
  Company Number: 1201-031

PATIENT
  Age: 54 Year
  Sex: Male
  Weight: 67.13 kg

DRUGS (13)
  1. VEGF TRAP [Suspect]
     Dates: start: 20111109
  2. PLAVIX [Suspect]
     Dates: start: 2008
  3. ACETYLSALICYLIC ACID [Suspect]
     Route: 048
     Dates: start: 2008
  4. METOCLOPRAMIDE [Concomitant]
  5. HYDROCODONE [Concomitant]
  6. HYDROCHLOROTHIAZIDE [Concomitant]
  7. KEPPRA (LEVETIRACETAM) [Concomitant]
  8. ZOLOFT (SERTRALINE HYDROCHLORIDE) [Concomitant]
  9. SIMVASTATIN [Concomitant]
  10. GEMFIBROZIL [Concomitant]
  11. NOVOLIN [Concomitant]
  12. METFORMIN (METFORMIN) [Concomitant]
  13. LISINOPRIL [Concomitant]

REACTIONS (2)
  - Vitreous haemorrhage [None]
  - Vitreous detachment [None]
